FAERS Safety Report 16305770 (Version 1)
Quarter: 2019Q2

REPORT INFORMATION
  Report Type: Spontaneous
  Country: US (occurrence: US)
  Receive Date: 20190513
  Receipt Date: 20190513
  Transmission Date: 20190711
  Serious: Yes (Other)
  Sender: FDA-Public Use
  Company Number: US-BTG-201900076

PATIENT
  Age: 9 Year
  Sex: Female

DRUGS (1)
  1. CROFAB [Suspect]
     Active Substance: CROTALIDAE POLYVALENT IMMUNE FAB (OVINE)
     Indication: SNAKE BITE
     Dosage: 4 VIALS
     Route: 065
     Dates: start: 201807

REACTIONS (10)
  - Peripheral swelling [Unknown]
  - Foot deformity [Not Recovered/Not Resolved]
  - Wound secretion [Unknown]
  - Contusion [Unknown]
  - Gait inability [Recovered/Resolved]
  - Gangrene [Unknown]
  - Skin discolouration [Unknown]
  - Discomfort [Unknown]
  - Hypoaesthesia [Not Recovered/Not Resolved]
  - Underdose [Unknown]
